FAERS Safety Report 10241985 (Version 1)
Quarter: 2014Q2

REPORT INFORMATION
  Report Type: Spontaneous
  Country: US (occurrence: US)
  Receive Date: 20140617
  Receipt Date: 20140617
  Transmission Date: 20141212
  Serious: No
  Sender: FDA-Public Use
  Company Number: US-BAYER-2014-086454

PATIENT
  Age: 37 Year
  Sex: Male
  Weight: 138.32 kg

DRUGS (2)
  1. ALEVE CAPLET [Suspect]
     Indication: ARTHRITIS
     Dosage: 2 DF, BID
     Route: 048
     Dates: start: 201405
  2. GEODON [Concomitant]

REACTIONS (3)
  - Therapeutic response changed [Unknown]
  - Extra dose administered [None]
  - Incorrect drug administration duration [None]
